FAERS Safety Report 9909741 (Version 1)
Quarter: 2014Q1

REPORT INFORMATION
  Report Type: Spontaneous
  Country: US (occurrence: None)
  Receive Date: 20140218
  Receipt Date: 20140218
  Transmission Date: 20141002
  Serious: Yes (Disabling)
  Sender: FDA-Public Use
  Company Number: None

PATIENT
  Age: 36 Year
  Sex: Male
  Weight: 108.86 kg

DRUGS (2)
  1. CIPROFLOXACIN [Suspect]
     Indication: URETHRITIS
     Route: 048
     Dates: start: 20140209, end: 20140210
  2. CIPROFLOXACIN [Suspect]
     Indication: URINARY TRACT INFECTION
     Route: 048
     Dates: start: 20140209, end: 20140210

REACTIONS (8)
  - Malaise [None]
  - Photosensitivity reaction [None]
  - Diarrhoea [None]
  - Fatigue [None]
  - Musculoskeletal pain [None]
  - Myalgia [None]
  - Muscle tightness [None]
  - Paraesthesia [None]
